APPROVED DRUG PRODUCT: HEXADROL
Active Ingredient: DEXAMETHASONE SODIUM PHOSPHATE
Strength: EQ 10MG PHOSPHATE/ML **Federal Register determination that product was not discontinued or withdrawn for safety or effectiveness reasons**
Dosage Form/Route: INJECTABLE;INJECTION
Application: N014694 | Product #003
Applicant: ASPEN GLOBAL INC
Approved: Approved Prior to Jan 1, 1982 | RLD: Yes | RS: No | Type: DISCN